FAERS Safety Report 5888422-3 (Version None)
Quarter: 2008Q3

REPORT INFORMATION
  Report Type: 
  Country: None (occurrence: None)
  Receive Date: 20080917
  Receipt Date: 20080917
  Transmission Date: 20090109
  Serious: Yes (Other)
  Sender: FDA-Public Use
  Company Number: None

PATIENT
  Sex: Female
  Weight: 56.6996 kg

DRUGS (4)
  1. TOPAMAX [Suspect]
     Indication: MIGRAINE
     Dosage: 25MG 1 AT BEDTIME PO
     Route: 048
     Dates: start: 20080825, end: 20080829
  2. LAMICTAL [Concomitant]
  3. ABILIFY [Concomitant]
  4. CLONIDINE [Concomitant]

REACTIONS (6)
  - ABNORMAL BEHAVIOUR [None]
  - AFFECT LABILITY [None]
  - AGGRESSION [None]
  - AGITATION [None]
  - ANGER [None]
  - PHYSICAL ABUSE [None]
